FAERS Safety Report 12508959 (Version 1)
Quarter: 2016Q2

REPORT INFORMATION
  Report Type: Spontaneous
  Country: IT (occurrence: IT)
  Receive Date: 20160629
  Receipt Date: 20160629
  Transmission Date: 20160815
  Serious: Yes (Other)
  Sender: FDA-Public Use
  Company Number: IT-BAUSCH-BL-2016-015171

PATIENT
  Age: 77 Year
  Sex: Male
  Weight: 76 kg

DRUGS (2)
  1. YELLOX [Suspect]
     Active Substance: BROMFENAC SODIUM
     Indication: ANTIINFLAMMATORY THERAPY
     Route: 047
     Dates: start: 20160204, end: 20160224
  2. OFTAQUIX [Interacting]
     Active Substance: LEVOFLOXACIN
     Indication: PROPHYLAXIS
     Route: 047
     Dates: start: 20160204, end: 20160224

REACTIONS (2)
  - Drug interaction [Recovered/Resolved]
  - Photosensitivity reaction [Recovered/Resolved]

NARRATIVE: CASE EVENT DATE: 20160224
